FAERS Safety Report 17585573 (Version 2)
Quarter: 2020Q2

REPORT INFORMATION
  Report Type: Report from Study
  Country: GB (occurrence: GB)
  Receive Date: 20200326
  Receipt Date: 20200406
  Transmission Date: 20200713
  Serious: Yes (Death, Hospitalization)
  Sender: FDA-Public Use
  Company Number: GB-ROCHE-2572041

PATIENT
  Age: 77 Year
  Sex: Male
  Weight: 90 kg

DRUGS (1)
  1. METALYSE [Suspect]
     Active Substance: TENECTEPLASE
     Indication: ISCHAEMIC STROKE
     Dosage: W/A SINGLE WEIGHT ADJUSTED BOLUS DOSE
     Route: 042

REACTIONS (2)
  - Ischaemic stroke [Fatal]
  - Haematoma evacuation [Not Recovered/Not Resolved]

NARRATIVE: CASE EVENT DATE: 20200313
